FAERS Safety Report 20115070 (Version 4)
Quarter: 2022Q1

REPORT INFORMATION
  Report Type: Spontaneous
  Country: JP (occurrence: JP)
  Receive Date: 20211125
  Receipt Date: 20220322
  Transmission Date: 20220424
  Serious: Yes (Hospitalization, Other)
  Sender: FDA-Public Use
  Company Number: JP-MSD-M2021-23398

PATIENT
  Age: 83 Year
  Sex: Male

DRUGS (4)
  1. KEYTRUDA [Suspect]
     Active Substance: PEMBROLIZUMAB
     Indication: Gingival cancer
     Dosage: 200 MILLIGRAM, Q3W
     Route: 041
     Dates: start: 20210824, end: 2021
  2. SULFAMETHOXAZOLE\TRIMETHOPRIM [Suspect]
     Active Substance: SULFAMETHOXAZOLE\TRIMETHOPRIM
     Indication: Polymyalgia rheumatica
     Dosage: UNK
     Route: 065
     Dates: start: 20211025
  3. CISPLATIN [Concomitant]
     Active Substance: CISPLATIN
     Indication: Gingival cancer
     Dosage: 70 MILLIGRAM/SQ. METER, 3 WEEKS
     Route: 041
     Dates: start: 20210824
  4. FLUOROURACIL [Concomitant]
     Active Substance: FLUOROURACIL
     Indication: Gingival cancer
     Dosage: 1000 MILLIGRAM/SQ. METER, 3 WEEKS
     Route: 041
     Dates: start: 20210824

REACTIONS (4)
  - Polymyalgia rheumatica [Recovering/Resolving]
  - Pulmonary artery thrombosis [Not Recovered/Not Resolved]
  - Drug eruption [Recovered/Resolved]
  - Pathological fracture [Unknown]

NARRATIVE: CASE EVENT DATE: 20210901
